FAERS Safety Report 13994180 (Version 1)
Quarter: 2017Q3

REPORT INFORMATION
  Report Type: Not Available
  Country: US (occurrence: US)
  Receive Date: 20170920
  Receipt Date: 20170920
  Transmission Date: 20171128
  Serious: No
  Sender: FDA-Public Use
  Company Number: US-NEUROCRINE BIOSCIENCES INC.-2017NBI00476

PATIENT
  Age: 50 Year
  Sex: Male

DRUGS (13)
  1. INGREZZA [Suspect]
     Active Substance: VALBENAZINE
     Indication: TARDIVE DYSKINESIA
     Route: 048
     Dates: start: 20170609
  2. OLANZAPINE. [Concomitant]
     Active Substance: OLANZAPINE
  3. BENZTROPINE [Concomitant]
     Active Substance: BENZTROPINE
  4. LUTEIN [Concomitant]
     Active Substance: LUTEIN
  5. BIOTIN [Concomitant]
     Active Substance: BIOTIN
  6. CENTRUM [Concomitant]
     Active Substance: VITAMINS
  7. CINNAMON. [Concomitant]
     Active Substance: CINNAMON
  8. COENZYME Q10 [Concomitant]
     Active Substance: UBIDECARENONE
  9. DIVALPROEX [Concomitant]
     Active Substance: DIVALPROEX SODIUM
  10. GARLIC OIL [Concomitant]
     Active Substance: GARLIC OIL
  11. LATUDA [Concomitant]
     Active Substance: LURASIDONE HYDROCHLORIDE
  12. FISH OIL [Concomitant]
     Active Substance: FISH OIL
  13. VITAMIN D3 [Concomitant]
     Active Substance: CHOLECALCIFEROL

REACTIONS (2)
  - Drug ineffective [Unknown]
  - Tardive dyskinesia [Unknown]

NARRATIVE: CASE EVENT DATE: 2017
